FAERS Safety Report 17888975 (Version 1)
Quarter: 2020Q2

REPORT INFORMATION
  Report Type: Spontaneous
  Country: US (occurrence: US)
  Receive Date: 20200611
  Receipt Date: 20200611
  Transmission Date: 20200714
  Serious: Yes (Hospitalization)
  Sender: FDA-Public Use
  Company Number: None

PATIENT
  Age: 65 Year
  Sex: Male

DRUGS (1)
  1. DOFETILIDE. [Suspect]
     Active Substance: DOFETILIDE
     Indication: ESSENTIAL HYPERTENSION
     Route: 048
     Dates: start: 201712, end: 20200521

REACTIONS (2)
  - Therapy cessation [None]
  - Cardiac arrest [None]

NARRATIVE: CASE EVENT DATE: 20200521
